FAERS Safety Report 8927812 (Version 1)
Quarter: 2012Q4

REPORT INFORMATION
  Report Type: Report from Study
  Country: CA (occurrence: CA)
  Receive Date: 20121127
  Receipt Date: 20121127
  Transmission Date: 20130627
  Serious: Yes (Death)
  Sender: FDA-Public Use
  Company Number: CA-ROCHE-1160177

PATIENT
  Sex: Male

DRUGS (3)
  1. CAPECITABINE [Suspect]
     Indication: GASTRIC CANCER
     Route: 065
     Dates: start: 20120621, end: 201208
  2. EPIRUBICIN [Suspect]
     Indication: GASTRIC CANCER
     Route: 065
     Dates: end: 201208
  3. CISPLATIN [Suspect]
     Indication: GASTRIC CANCER
     Route: 065
     Dates: end: 201208

REACTIONS (1)
  - Death [Fatal]
